FAERS Safety Report 10239651 (Version 1)
Quarter: 2014Q2

REPORT INFORMATION
  Report Type: Spontaneous
  Country: GB (occurrence: None)
  Receive Date: 20140612
  Receipt Date: 20140612
  Transmission Date: 20141212
  Serious: Yes (Other)
  Sender: FDA-Public Use
  Company Number: AUR-APL-2014-06292

PATIENT
  Age: 84 Year
  Sex: Female
  Weight: 54 kg

DRUGS (8)
  1. AMOXICILLIN [Suspect]
     Indication: URINARY TRACT INFECTION
     Route: 048
     Dates: start: 20140502, end: 20140504
  2. ATENOLOL (ATENOLOL) [Concomitant]
  3. FUROSEMIDE (FUROSEMIDE) [Concomitant]
  4. GLYCERYL TRINITRATE (GLYCERYL TRINITRATE) [Concomitant]
  5. SIMVASTATIN (SIMVASTATIN) [Concomitant]
  6. TRANSIDERM-NITRO (GLYCERYL TRINITRATE) [Concomitant]
  7. VENTOLIN (SALBUTAMOL) [Concomitant]
  8. WARFARIN (WARFARIN) [Concomitant]

REACTIONS (5)
  - Hypersensitivity [None]
  - Dyspnoea [None]
  - Diplopia [None]
  - Renal pain [None]
  - Swelling face [None]
